FAERS Safety Report 12343754 (Version 1)
Quarter: 2016Q2

REPORT INFORMATION
  Report Type: Spontaneous
  Country: US (occurrence: US)
  Receive Date: 20160507
  Receipt Date: 20160507
  Transmission Date: 20160815
  Serious: No
  Sender: FDA-Public Use
  Company Number: US-ACCORD-035144

PATIENT
  Age: 64 Year
  Sex: Male

DRUGS (5)
  1. LEXAPRO [Concomitant]
     Active Substance: ESCITALOPRAM OXALATE
  2. CLONAZEPAM. [Concomitant]
     Active Substance: CLONAZEPAM
  3. GABAPENTIN. [Concomitant]
     Active Substance: GABAPENTIN
  4. OXYCODONE/OXYCODONE HYDROCHLORIDE/OXYCODONE PECTINATE/OXYCODONE TEREPHTHALATE [Concomitant]
     Indication: PAIN
     Dosage: OXYCODONE 30 MG 1 Q 6 HOURS PRN
  5. QUETIAPINE ACCORD [Suspect]
     Active Substance: QUETIAPINE
     Indication: SOMNOLENCE
     Dosage: 1 TABLET AT BEDTIME?STRENGTH: 300 MG.
     Route: 048

REACTIONS (3)
  - Insomnia [Unknown]
  - Drug ineffective [Unknown]
  - Off label use [Unknown]

NARRATIVE: CASE EVENT DATE: 20150916
